FAERS Safety Report 6186688-6 (Version None)
Quarter: 2009Q2

REPORT INFORMATION
  Report Type: 
  Country: None (occurrence: None)
  Receive Date: 20090508
  Receipt Date: 20090508
  Transmission Date: 20091009
  Serious: Yes (Other)
  Sender: FDA-Public Use
  Company Number: None

PATIENT
  Sex: Female

DRUGS (1)
  1. LAMICTAL [Suspect]
     Indication: AFFECTIVE DISORDER
     Dosage: 150MG DAILY ORAL
     Route: 048
     Dates: start: 20080101

REACTIONS (2)
  - AFFECTIVE DISORDER [None]
  - PRODUCT SUBSTITUTION ISSUE [None]
